FAERS Safety Report 8150904-1 (Version None)
Quarter: 2012Q1

REPORT INFORMATION
  Report Type: 
  Country: None (occurrence: None)
  Receive Date: 20120220
  Receipt Date: 20120214
  Transmission Date: 20120608
  Serious: Yes (Hospitalization, Other)
  Sender: FDA-Public Use
  Company Number: PHHY2011US25735

PATIENT
  Sex: Female
  Weight: 72 kg

DRUGS (1)
  1. EXJADE [Suspect]
     Indication: IRON OVERLOAD
     Dosage: 1500 MG DAILY
     Route: 048
     Dates: start: 20100826

REACTIONS (3)
  - MYELODYSPLASTIC SYNDROME [None]
  - VISUAL IMPAIRMENT [None]
  - DIZZINESS [None]
